FAERS Safety Report 25009522 (Version 1)
Quarter: 2025Q1

REPORT INFORMATION
  Report Type: Spontaneous
  Country: US (occurrence: US)
  Receive Date: 20250225
  Receipt Date: 20250225
  Transmission Date: 20250409
  Serious: Yes (Hospitalization, Other)
  Sender: RANBAXY
  Company Number: US-SUN PHARMACEUTICAL INDUSTRIES LTD-2025R1-495763

PATIENT
  Age: 71 Year
  Sex: Female

DRUGS (1)
  1. FLECAINIDE ACETATE [Suspect]
     Active Substance: FLECAINIDE ACETATE
     Indication: Atrial fibrillation
     Dosage: 200 MILLIGRAM, BID
     Route: 065

REACTIONS (3)
  - Accidental overdose [Unknown]
  - Arrhythmic storm [Recovering/Resolving]
  - Toxicity to various agents [Unknown]
